FAERS Safety Report 19695310 (Version 1)
Quarter: 2021Q3

REPORT INFORMATION
  Report Type: Spontaneous
  Country: US (occurrence: US)
  Receive Date: 20210812
  Receipt Date: 20210812
  Transmission Date: 20211014
  Serious: Yes (Other)
  Sender: FDA-Public Use
  Company Number: US-BAUSCH-BL-2021-027562

PATIENT
  Age: 55 Year
  Sex: Female
  Weight: 53.52 kg

DRUGS (9)
  1. COVID?19 VACCINE NOS. [Suspect]
     Active Substance: COVID-19 VACCINE NOS
     Indication: PRODUCT USED FOR UNKNOWN INDICATION
     Dosage: 30MCG/0.3ML IN LEFT ARM
     Route: 058
     Dates: start: 20210407, end: 20210407
  2. METROGEL [Suspect]
     Active Substance: METRONIDAZOLE
     Indication: PRODUCT USED FOR UNKNOWN INDICATION
     Route: 065
  3. COVID?19 VACCINE NOS. [Suspect]
     Active Substance: COVID-19 VACCINE NOS
     Dosage: 30MCG/0.3ML
     Route: 058
     Dates: start: 20210508, end: 20210508
  4. ELIDEL [Suspect]
     Active Substance: PIMECROLIMUS
     Indication: SUBCUTANEOUS ABSCESS
     Route: 065
  5. ADAPALENE GEL [Suspect]
     Active Substance: ADAPALENE
     Indication: ACNE
     Route: 065
  6. ADAPALENE GEL [Suspect]
     Active Substance: ADAPALENE
     Indication: PRURITUS
  7. ELIDEL [Suspect]
     Active Substance: PIMECROLIMUS
     Indication: PRURITUS
  8. CLINDAMYCIN PHOSPHATE. [Suspect]
     Active Substance: CLINDAMYCIN PHOSPHATE
     Indication: PRURITUS
  9. CLINDAMYCIN PHOSPHATE. [Suspect]
     Active Substance: CLINDAMYCIN PHOSPHATE
     Indication: ACNE
     Route: 065

REACTIONS (3)
  - Postmenopausal haemorrhage [Unknown]
  - Rosacea [Not Recovered/Not Resolved]
  - Condition aggravated [Not Recovered/Not Resolved]

NARRATIVE: CASE EVENT DATE: 20210511
